FAERS Safety Report 21985307 (Version 3)
Quarter: 2023Q2

REPORT INFORMATION
  Report Type: Spontaneous
  Country: CA (occurrence: CA)
  Receive Date: 20230213
  Receipt Date: 20230413
  Transmission Date: 20230722
  Serious: Yes (Other)
  Sender: FDA-Public Use
  Company Number: CA-PFIZER INC-202300012964

PATIENT
  Age: 38 Year
  Sex: Male
  Weight: 85 kg

DRUGS (2)
  1. XELJANZ [Suspect]
     Active Substance: TOFACITINIB CITRATE
     Indication: Colitis ulcerative
     Dosage: 10 MG BID INDUCTION THEN 5 MG BID MAINTENANCE
     Route: 048
     Dates: start: 20221008
  2. XELJANZ [Suspect]
     Active Substance: TOFACITINIB CITRATE
     Dosage: 10 MG, 2X/DAY
     Route: 048
     Dates: start: 2023

REACTIONS (2)
  - Haemorrhage [Recovered/Resolved]
  - Head discomfort [Recovered/Resolved]
